FAERS Safety Report 4801548-8 (Version None)
Quarter: 2005Q4

REPORT INFORMATION
  Report Type: 
  Country: None (occurrence: None)
  Receive Date: 20051011
  Receipt Date: 20051011
  Transmission Date: 20060501
  Serious: Yes (Hospitalization)
  Sender: FDA-Public Use
  Company Number: None

PATIENT
  Age: 61 Year
  Sex: Male
  Weight: 104.7809 kg

DRUGS (3)
  1. LISINOPRIL [Suspect]
     Dosage: 10 MG Q DAY
  2. HYDROCHLOROTHIAZIDE [Suspect]
     Dosage: 12.5 Q DAY
  3. NAPROXEN [Suspect]

REACTIONS (1)
  - RENAL FAILURE ACUTE [None]
